FAERS Safety Report 14083328 (Version 5)
Quarter: 2018Q3

REPORT INFORMATION
  Report Type: Spontaneous
  Country: SK (occurrence: SK)
  Receive Date: 20171013
  Receipt Date: 20180909
  Transmission Date: 20181010
  Serious: Yes (Other)
  Sender: FDA-Public Use
  Company Number: SK-ELI_LILLY_AND_COMPANY-SK201706011530

PATIENT
  Age: 43 Year
  Sex: Male
  Weight: 130 kg

DRUGS (7)
  1. TALTZ [Suspect]
     Active Substance: IXEKIZUMAB
     Dosage: 80 MG, UNKNOWN
     Route: 058
     Dates: start: 20171214, end: 20180502
  2. GELARGIN [Concomitant]
     Active Substance: FLUOCINOLONE ACETONIDE
     Dosage: UNK UNK, UNKNOWN
     Route: 065
  3. BALNEUM                            /00103901/ [Concomitant]
     Indication: BALNEOTHERAPY
     Dosage: UNK UNK, DAILY
     Route: 054
  4. TALTZ [Suspect]
     Active Substance: IXEKIZUMAB
     Indication: PSORIASIS
     Dosage: 80 MG, OTHER
     Route: 058
     Dates: end: 20170614
  5. TALTZ [Suspect]
     Active Substance: IXEKIZUMAB
     Dosage: 80 MG, OTHER
     Route: 058
     Dates: start: 20170621
  6. BELOSALIC                          /01343201/ [Concomitant]
     Dosage: UNK UNK, UNKNOWN
     Route: 065
  7. TALTZ [Suspect]
     Active Substance: IXEKIZUMAB
     Indication: PSORIASIS
     Dosage: 160 MG, SINGLE
     Route: 058
     Dates: start: 20170503

REACTIONS (10)
  - Influenza like illness [Unknown]
  - Skin burning sensation [Unknown]
  - Dysgeusia [Unknown]
  - Leukoplakia oral [Unknown]
  - Intestinal haemorrhage [Recovered/Resolved]
  - Respiratory tract infection viral [Unknown]
  - Macroglossia [Unknown]
  - Pyrexia [Recovered/Resolved]
  - Arthralgia [Unknown]
  - Oropharyngeal pain [Recovered/Resolved]

NARRATIVE: CASE EVENT DATE: 20170610
